FAERS Safety Report 8201305 (Version 5)
Quarter: 2013Q3

REPORT INFORMATION
  Report Type: Report from Study
  Country: US (occurrence: US)
  Receive Date: 20111026
  Receipt Date: 20130903
  Transmission Date: 20140515
  Serious: Yes (Hospitalization)
  Sender: FDA-Public Use
  Company Number: PHHO2011US17436

PATIENT
  Age: 81 Year
  Sex: Male
  Weight: 75.6 kg

DRUGS (5)
  1. ALISKIREN [Suspect]
     Indication: CARDIOVASCULAR DISORDER
     Route: 048
     Dates: start: 20080904, end: 20111013
  2. ALISKIREN [Suspect]
     Route: 048
     Dates: start: 20111012
  3. AMLODIPINE [Suspect]
     Indication: HYPERTENSION
     Dosage: 10 MG, QD
     Dates: start: 20110518
  4. LABETALOL [Suspect]
     Indication: HYPERTENSION
     Dosage: 200 MG, BID
     Dates: start: 20101217
  5. LOSARTAN [Suspect]
     Indication: HYPERTENSION
     Dosage: 100 MG, QD
     Route: 048
     Dates: start: 20100911

REACTIONS (2)
  - Hypotension [Recovered/Resolved]
  - Cardiac arrest [Recovered/Resolved]
